FAERS Safety Report 7202124-2 (Version None)
Quarter: 2010Q4

REPORT INFORMATION
  Report Type: 
  Country: None (occurrence: None)
  Receive Date: 20101229
  Receipt Date: 20101214
  Transmission Date: 20110411
  Serious: Yes (Death, Other)
  Sender: FDA-Public Use
  Company Number: PHHY2010US79354

PATIENT
  Sex: Male

DRUGS (2)
  1. GLEEVEC [Suspect]
     Indication: MALIGNANT SOFT TISSUE NEOPLASM
     Dosage: 300 MG DAILY
     Route: 048
     Dates: start: 20090622
  2. MORPHINE [Concomitant]

REACTIONS (5)
  - ABDOMINAL PAIN [None]
  - DIVERTICULAR PERFORATION [None]
  - TUMOUR NECROSIS [None]
  - VOMITING [None]
  - WHITE BLOOD CELL COUNT INCREASED [None]
